FAERS Safety Report 5256440-4 (Version None)
Quarter: 2007Q1

REPORT INFORMATION
  Report Type: 
  Country: None (occurrence: None)
  Receive Date: 20070301
  Receipt Date: 20070220
  Transmission Date: 20070707
  Serious: Yes (Other)
  Sender: FDA-Public Use
  Company Number: SPV1-2007-00873

PATIENT
  Age: 36 Year
  Sex: Female
  Weight: 77.1 kg

DRUGS (3)
  1. ADDERALL 10 [Suspect]
     Indication: ATTENTION DEFICIT/HYPERACTIVITY DISORDER
     Dosage: 10 MG, 2X/DAY, BID, ORAL
     Route: 048
     Dates: start: 20050201, end: 20060213
  2. PROVIGIL [Concomitant]
  3. DEPO-PROVERA SUSPENSION/INJ [Concomitant]

REACTIONS (8)
  - BONE MARROW FAILURE [None]
  - DEPRESSION [None]
  - HYPOTRICHOSIS [None]
  - HYPOVITAMINOSIS [None]
  - IRON DEFICIENCY [None]
  - MALABSORPTION [None]
  - MALNUTRITION [None]
  - STOMATITIS [None]
